FAERS Safety Report 21302709 (Version 1)
Quarter: 2022Q3

REPORT INFORMATION
  Report Type: Spontaneous
  Country: US (occurrence: None)
  Receive Date: 20220907
  Receipt Date: 20220907
  Transmission Date: 20221027
  Serious: No
  Sender: FDA-Public Use
  Company Number: None

PATIENT

DRUGS (1)
  1. PROGESTERONE [Suspect]
     Active Substance: PROGESTERONE

REACTIONS (10)
  - Headache [None]
  - Nausea [None]
  - Gastrooesophageal reflux disease [None]
  - Vomiting [None]
  - Fatigue [None]
  - Malaise [None]
  - Feeling abnormal [None]
  - Product dispensing error [None]
  - Incorrect dose administered [None]
  - Transcription medication error [None]
